FAERS Safety Report 8542313-8 (Version None)
Quarter: 2012Q3

REPORT INFORMATION
  Report Type: 
  Country: None (occurrence: None)
  Receive Date: 20120726
  Receipt Date: 20111010
  Transmission Date: 20120928
  Serious: No
  Sender: FDA-Public Use
  Company Number: US-ASTRAZENECA-2011SE48826

PATIENT
  Age: 61 Year
  Sex: Female
  Weight: 86.2 kg

DRUGS (4)
  1. SEROQUEL [Suspect]
     Route: 048
  2. SEROQUEL [Suspect]
     Dosage: DAILY
     Route: 048
  3. SEROQUEL [Suspect]
     Route: 048
  4. TRAZODONE HCL [Concomitant]

REACTIONS (1)
  - GRIEF REACTION [None]
